FAERS Safety Report 25068748 (Version 1)
Quarter: 2025Q1

REPORT INFORMATION
  Report Type: Spontaneous
  Country: RO (occurrence: RO)
  Receive Date: 20250312
  Receipt Date: 20250312
  Transmission Date: 20250408
  Serious: Yes (Other)
  Sender: SANOFI AVENTIS
  Company Number: None

PATIENT
  Age: 71 Year
  Sex: Male

DRUGS (2)
  1. DUPIXENT [Suspect]
     Active Substance: DUPILUMAB
     Indication: Dermatitis atopic
     Dosage: 1 DF, QOW (1 INJECTION/ 2 WEEKS)
     Route: 058
     Dates: start: 20230620, end: 20230926
  2. ENTECAVIR [Concomitant]
     Active Substance: ENTECAVIR
     Indication: Hepatitis B
     Dosage: 1 DF, QD
     Route: 048
     Dates: start: 20230601

REACTIONS (1)
  - Hypereosinophilic syndrome [Recovering/Resolving]

NARRATIVE: CASE EVENT DATE: 20230925
